FAERS Safety Report 5596249-5 (Version None)
Quarter: 2007Q4

REPORT INFORMATION
  Report Type: 
  Country: None (occurrence: None)
  Receive Date: 20071218
  Receipt Date: 20070521
  Transmission Date: 20080405
  Serious: Yes (Other)
  Sender: FDA-Public Use
  Company Number: 2007015040

PATIENT
  Age: 52 Year
  Sex: Female
  Weight: 74.8 kg

DRUGS (2)
  1. BEXTRA [Suspect]
     Indication: BACK PAIN
     Dosage: 20 MG, 3 IN 1 D), ORAL
     Route: 048
     Dates: start: 20020101, end: 20020101
  2. VIOXX [Suspect]
     Indication: BACK PAIN

REACTIONS (5)
  - ABDOMINAL PAIN UPPER [None]
  - BACK PAIN [None]
  - HYPERTENSION [None]
  - MYOCARDIAL INFARCTION [None]
  - THINKING ABNORMAL [None]
